FAERS Safety Report 4516849-0 (Version None)
Quarter: 2004Q4

REPORT INFORMATION
  Report Type: 
  Country: None (occurrence: None)
  Receive Date: 20041202
  Receipt Date: 20041123
  Transmission Date: 20050328
  Serious: Yes (Hospitalization)
  Sender: FDA-Public Use
  Company Number: GB-GLAXOSMITHKLINE-B0357913A

PATIENT
  Age: 62 Year
  Sex: Male

DRUGS (9)
  1. AVANDIA [Suspect]
     Dosage: 4MG UNKNOWN
     Route: 048
     Dates: start: 20041001, end: 20041109
  2. METFORMIN [Concomitant]
     Dosage: 850MG THREE TIMES PER DAY
     Route: 048
  3. GLUCOSAMINE [Concomitant]
     Dosage: 500MG PER DAY
     Route: 065
  4. FRUSEMIDE [Concomitant]
     Dosage: 50MG PER DAY
     Route: 065
  5. WARFARIN SODIUM [Concomitant]
     Indication: HEART VALVE REPLACEMENT
     Dosage: 6.75MG PER DAY
     Route: 048
  6. LISINOPRIL [Concomitant]
     Dosage: 10MG PER DAY
     Route: 048
  7. ATORVASTATIN CALCIUM [Concomitant]
     Dosage: 10MG PER DAY
     Route: 048
  8. SPIRONOLACTONE [Concomitant]
     Dosage: 25MG PER DAY
     Route: 048
  9. ALLOPURINOL [Concomitant]
     Dosage: 100MG PER DAY
     Route: 048

REACTIONS (2)
  - PYREXIA [None]
  - RASH ERYTHEMATOUS [None]
